FAERS Safety Report 5065652-4 (Version None)
Quarter: 2006Q3

REPORT INFORMATION
  Report Type: 
  Country: None (occurrence: None)
  Receive Date: 20060731
  Receipt Date: 20060418
  Transmission Date: 20061208
  Serious: Yes (Hospitalization)
  Sender: FDA-Public Use
  Company Number: 2006AP01871

PATIENT
  Age: 28017 Day
  Sex: Male
  Weight: 68.8 kg

DRUGS (6)
  1. CRESTOR [Suspect]
     Indication: HYPERCHOLESTEROLAEMIA
     Route: 048
     Dates: start: 20060130, end: 20060319
  2. CRESTOR [Suspect]
     Route: 048
     Dates: start: 20060425
  3. PROSTAGLANDIN E2 [Concomitant]
     Indication: PERIPHERAL CIRCULATORY FAILURE
  4. EPADEL [Concomitant]
     Indication: ARTERIOSCLEROSIS OBLITERANS
     Route: 048
     Dates: start: 19980613
  5. DORNER [Concomitant]
     Indication: ARTERIOSCLEROSIS OBLITERANS
     Route: 048
     Dates: start: 20000313
  6. BLOPRESS [Concomitant]
     Indication: HYPERTENSION
     Route: 048
     Dates: start: 20001113

REACTIONS (3)
  - CEREBROVASCULAR DISORDER [None]
  - DEMENTIA [None]
  - NO ADVERSE EFFECT [None]
